FAERS Safety Report 23526951 (Version 11)
Quarter: 2025Q4

REPORT INFORMATION
  Report Type: Spontaneous
  Country: EU (occurrence: EU)
  Receive Date: 20240215
  Receipt Date: 20251113
  Transmission Date: 20260117
  Serious: Yes (Death, Hospitalization, Other)
  Sender: NOVARTIS
  Company Number: EU-BLUEFISH PHARMACEUTICALS AB-2023BF002326

PATIENT
  Age: 54 Year
  Sex: Female

DRUGS (50)
  1. CAPECITABINE [Suspect]
     Active Substance: CAPECITABINE
     Indication: Prophylaxis
     Dosage: UNK
     Route: 048
     Dates: start: 202111
  2. CAPECITABINE [Suspect]
     Active Substance: CAPECITABINE
     Indication: Breast cancer
  3. CAPECITABINE [Suspect]
     Active Substance: CAPECITABINE
     Indication: Chemotherapy
  4. CAPECITABINE [Suspect]
     Active Substance: CAPECITABINE
     Indication: Hormone therapy
  5. CAPECITABINE [Suspect]
     Active Substance: CAPECITABINE
     Indication: Neoplasm malignant
  6. CAPECITABINE [Suspect]
     Active Substance: CAPECITABINE
     Indication: Prophylaxis
  7. LETROZOLE [Suspect]
     Active Substance: LETROZOLE
     Indication: Hormone therapy
     Dosage: UNK
     Route: 065
  8. LETROZOLE [Suspect]
     Active Substance: LETROZOLE
     Indication: Breast cancer
  9. LETROZOLE [Suspect]
     Active Substance: LETROZOLE
     Indication: Chemotherapy
  10. LETROZOLE [Suspect]
     Active Substance: LETROZOLE
     Indication: Neoplasm malignant
  11. LETROZOLE [Suspect]
     Active Substance: LETROZOLE
     Indication: Prophylaxis
  12. PACLITAXEL [Suspect]
     Active Substance: PACLITAXEL
     Indication: Breast cancer
     Dosage: UNK
     Route: 042
     Dates: start: 202012
  13. PACLITAXEL [Suspect]
     Active Substance: PACLITAXEL
     Indication: Neoplasm malignant
  14. PACLITAXEL [Suspect]
     Active Substance: PACLITAXEL
     Indication: Chemotherapy
  15. PACLITAXEL [Suspect]
     Active Substance: PACLITAXEL
     Indication: Hormone therapy
  16. PACLITAXEL [Suspect]
     Active Substance: PACLITAXEL
     Indication: Neoplasm malignant
  17. PACLITAXEL [Suspect]
     Active Substance: PACLITAXEL
     Indication: Prophylaxis
  18. TRASTUZUMAB [Suspect]
     Active Substance: TRASTUZUMAB
     Indication: Prophylaxis
     Dosage: UNK
     Route: 042
     Dates: start: 202012
  19. TRASTUZUMAB [Suspect]
     Active Substance: TRASTUZUMAB
     Indication: Breast cancer
     Dosage: UNK, (SOLUTION FOR INFUSION)
     Route: 042
     Dates: start: 202111
  20. TRASTUZUMAB [Suspect]
     Active Substance: TRASTUZUMAB
     Indication: Prophylaxis
  21. TRASTUZUMAB [Suspect]
     Active Substance: TRASTUZUMAB
     Indication: Chemotherapy
  22. TRASTUZUMAB [Suspect]
     Active Substance: TRASTUZUMAB
     Indication: Hormone therapy
  23. TRASTUZUMAB [Suspect]
     Active Substance: TRASTUZUMAB
     Indication: Neoplasm malignant
  24. TRASTUZUMAB [Suspect]
     Active Substance: TRASTUZUMAB
     Indication: HER2 positive breast cancer
  25. TRASTUZUMAB [Suspect]
     Active Substance: TRASTUZUMAB
     Indication: Prophylaxis
  26. TUCATINIB [Suspect]
     Active Substance: TUCATINIB
     Indication: Prophylaxis
     Dosage: UNK
     Route: 048
     Dates: start: 202111
  27. TUCATINIB [Suspect]
     Active Substance: TUCATINIB
     Indication: Breast cancer
  28. TUCATINIB [Suspect]
     Active Substance: TUCATINIB
     Indication: Prophylaxis
  29. TUCATINIB [Suspect]
     Active Substance: TUCATINIB
     Indication: Chemotherapy
  30. TUCATINIB [Suspect]
     Active Substance: TUCATINIB
     Indication: Hormone therapy
  31. TUCATINIB [Suspect]
     Active Substance: TUCATINIB
     Indication: Neoplasm malignant
  32. TAXOTERE [Suspect]
     Active Substance: DOCETAXEL
     Indication: Chemotherapy
     Dosage: UNK (3 TAXOTERE TRASTUZUMAB)
     Route: 065
     Dates: start: 202012
  33. TAXOTERE [Suspect]
     Active Substance: DOCETAXEL
     Indication: Breast cancer
     Dosage: UNK
     Route: 065
  34. TAXOTERE [Suspect]
     Active Substance: DOCETAXEL
     Indication: Chemotherapy
  35. TAXOTERE [Suspect]
     Active Substance: DOCETAXEL
     Indication: Hormone therapy
  36. TAXOTERE [Suspect]
     Active Substance: DOCETAXEL
     Indication: Neoplasm malignant
  37. TAXOTERE [Suspect]
     Active Substance: DOCETAXEL
     Indication: Prophylaxis
  38. CYCLOPHOSPHAMIDE\EPIRUBICIN HYDROCHLORIDE\FLUOROURACIL [Suspect]
     Active Substance: CYCLOPHOSPHAMIDE\EPIRUBICIN HYDROCHLORIDE\FLUOROURACIL
     Indication: Chemotherapy
     Dosage: UNK (3 FEC)
     Route: 042
  39. PERTUZUMAB [Suspect]
     Active Substance: PERTUZUMAB
     Indication: Neoplasm malignant
     Dosage: UNK
     Route: 042
     Dates: start: 202012
  40. PERTUZUMAB [Suspect]
     Active Substance: PERTUZUMAB
     Indication: Breast cancer
  41. PERTUZUMAB [Suspect]
     Active Substance: PERTUZUMAB
     Indication: Chemotherapy
  42. PERTUZUMAB [Suspect]
     Active Substance: PERTUZUMAB
     Indication: Hormone therapy
  43. PERTUZUMAB [Suspect]
     Active Substance: PERTUZUMAB
     Indication: Neoplasm malignant
  44. PERTUZUMAB [Suspect]
     Active Substance: PERTUZUMAB
     Indication: Prophylaxis
  45. DOCETAXEL [Suspect]
     Active Substance: DOCETAXEL
     Indication: Breast cancer
     Dosage: UNK (3 TAXOTERE TRASTUZUMAB) UNK (START DATE: DEC-2020) )
     Route: 065
     Dates: start: 202012
  46. DOCETAXEL [Suspect]
     Active Substance: DOCETAXEL
     Indication: Chemotherapy
     Dosage: UNK
     Route: 065
  47. DOCETAXEL [Suspect]
     Active Substance: DOCETAXEL
     Indication: Hormone therapy
  48. DOCETAXEL [Suspect]
     Active Substance: DOCETAXEL
     Indication: Neoplasm malignant
  49. DOCETAXEL [Suspect]
     Active Substance: DOCETAXEL
     Indication: Prophylaxis
  50. LETROZOLE [Concomitant]
     Active Substance: LETROZOLE
     Indication: Product used for unknown indication
     Dosage: UNK
     Route: 065

REACTIONS (22)
  - Metastases to adrenals [Fatal]
  - Metastases to meninges [Fatal]
  - Cerebral haematoma [Fatal]
  - Altered state of consciousness [Fatal]
  - Drug ineffective [Fatal]
  - Glossopharyngeal nerve paralysis [Fatal]
  - Hyperproteinaemia [Fatal]
  - Diplopia [Fatal]
  - Hypoglycaemia [Fatal]
  - Paraesthesia [Fatal]
  - Metastases to meninges [Fatal]
  - Epilepsy [Fatal]
  - Fall [Fatal]
  - Haematoma [Fatal]
  - Neurological decompensation [Fatal]
  - Dysarthria [Fatal]
  - Metastases to bone [Fatal]
  - Metastases to lymph nodes [Fatal]
  - Metastases to liver [Fatal]
  - Disease progression [Fatal]
  - Metastases to lung [Fatal]
  - Metastases to adrenals [Fatal]

NARRATIVE: CASE EVENT DATE: 20201001
